FAERS Safety Report 4951345-8 (Version None)
Quarter: 2006Q1

REPORT INFORMATION
  Report Type: 
  Country: None (occurrence: None)
  Receive Date: 20060317
  Receipt Date: 20060227
  Transmission Date: 20060701
  Serious: Yes (Other)
  Sender: FDA-Public Use
  Company Number: US200603000561

PATIENT
  Age: 76 Year

DRUGS (4)
  1. FORTEO [Suspect]
     Indication: OSTEOPOROSIS
     Dates: start: 20051101
  2. CALCIUM CARBONATE (CALCIUM CARBONATE) [Concomitant]
  3. ERGOCALCIFEROL/CALCIUM PHOSP/CALCIUM SOD LACT (CALCIUM PHOSPHATE, CALC [Concomitant]
  4. ATENOLOL [Concomitant]

REACTIONS (7)
  - BLOOD CALCIUM INCREASED [None]
  - HEADACHE [None]
  - HYPERTENSION [None]
  - INJECTION SITE PAIN [None]
  - PAIN IN EXTREMITY [None]
  - PHARMACEUTICAL PRODUCT COMPLAINT [None]
  - PHARYNGOLARYNGEAL PAIN [None]
